FAERS Safety Report 5754481-1 (Version None)
Quarter: 2008Q2

REPORT INFORMATION
  Report Type: 
  Country: None (occurrence: None)
  Receive Date: 20080530
  Receipt Date: 20080125
  Transmission Date: 20081010
  Serious: No
  Sender: FDA-Public Use
  Company Number: US-BOEHRINGER INGELHEIM GMBH, GERMANY-2007-BP-11953BP

PATIENT
  Sex: Male

DRUGS (7)
  1. MIRAPEX [Suspect]
     Indication: PARKINSON'S DISEASE
     Route: 048
     Dates: start: 20050526, end: 20060201
  2. ARTANE [Concomitant]
     Indication: PARKINSON'S DISEASE
  3. SINEMET [Concomitant]
     Indication: PARKINSON'S DISEASE
  4. ELDEPRYL [Concomitant]
  5. AMANTADINE HCL [Concomitant]
     Dates: start: 20060201
  6. SINGULAIR [Concomitant]
     Dates: start: 20050701
  7. TRIHEXYPHENIDYL HCL [Concomitant]

REACTIONS (5)
  - DEPRESSION [None]
  - EMOTIONAL DISTRESS [None]
  - INJURY [None]
  - OBSESSIVE-COMPULSIVE DISORDER [None]
  - PATHOLOGICAL GAMBLING [None]
